FAERS Safety Report 7527421-2 (Version None)
Quarter: 2011Q2

REPORT INFORMATION
  Report Type: 
  Country: None (occurrence: None)
  Receive Date: 20110607
  Receipt Date: 20110529
  Transmission Date: 20111010
  Serious: Yes (Hospitalization)
  Sender: FDA-Public Use
  Company Number: JP-JNJFOC-2003176920JP

PATIENT
  Age: 38 Year
  Sex: Male

DRUGS (1)
  1. PEPCID [Suspect]
     Indication: ABDOMINAL PAIN UPPER
     Dosage: DAILY DOSE TEXT: 10 MG, UNK
     Route: 048

REACTIONS (1)
  - HEPATITIS FULMINANT [None]
